FAERS Safety Report 20596832 (Version 1)
Quarter: 2022Q1

REPORT INFORMATION
  Report Type: Spontaneous
  Country: DE (occurrence: DE)
  Receive Date: 20220315
  Receipt Date: 20220315
  Transmission Date: 20220423
  Serious: Yes (Other)
  Sender: FDA-Public Use
  Company Number: DE-CELGENE-DEU-20220300593

PATIENT
  Age: 23 Year
  Sex: Female
  Weight: 75 kg

DRUGS (3)
  1. ZEPOSIA [Suspect]
     Active Substance: OZANIMOD HYDROCHLORIDE
     Indication: Multiple sclerosis relapse
     Dosage: .92 MILLIGRAM
     Route: 048
     Dates: start: 20210716
  2. PREGABALIN [Concomitant]
     Active Substance: PREGABALIN
     Indication: Multiple sclerosis
     Dosage: 100 MILLIGRAM
     Route: 048
     Dates: start: 20210201
  3. LEONA [Concomitant]
     Indication: Contraception
     Dosage: 0.1/0.02 MG
     Route: 048
     Dates: start: 20180205

REACTIONS (1)
  - Optic neuritis [Recovering/Resolving]

NARRATIVE: CASE EVENT DATE: 20220131
